FAERS Safety Report 20980103 (Version 2)
Quarter: 2022Q3

REPORT INFORMATION
  Report Type: Spontaneous
  Country: US (occurrence: US)
  Receive Date: 20220620
  Receipt Date: 20220728
  Transmission Date: 20221027
  Serious: No
  Sender: FDA-Public Use
  Company Number: US-AMGEN-USASP2022102034

PATIENT
  Age: 66 Year
  Sex: Female
  Weight: 75.5 kg

DRUGS (3)
  1. REPATHA [Suspect]
     Active Substance: EVOLOCUMAB
     Indication: Hyperlipidaemia
     Dosage: 420 MILLIGRAM, QMO
     Route: 065
     Dates: start: 2019
  2. REPATHA [Suspect]
     Active Substance: EVOLOCUMAB
     Indication: Blood cholesterol increased
  3. PRALUENT [Concomitant]
     Active Substance: ALIROCUMAB
     Dosage: UNK UNK, Q2WK
     Dates: start: 202004, end: 202004

REACTIONS (4)
  - Accidental exposure to product [Unknown]
  - Device use error [Unknown]
  - Injection site pain [Unknown]
  - Inappropriate schedule of product administration [Unknown]

NARRATIVE: CASE EVENT DATE: 20220607
